FAERS Safety Report 19618044 (Version 1)
Quarter: 2021Q3

REPORT INFORMATION
  Report Type: Spontaneous
  Country: ES (occurrence: ES)
  Receive Date: 20210728
  Receipt Date: 20210728
  Transmission Date: 20211014
  Serious: Yes (Hospitalization)
  Sender: FDA-Public Use
  Company Number: NVSC2021ES157479

PATIENT
  Age: 63 Year
  Sex: Female

DRUGS (4)
  1. EVEROLIMUS. [Suspect]
     Active Substance: EVEROLIMUS
     Indication: NEUROENDOCRINE TUMOUR
     Dosage: 10 MG, Q24H
     Route: 065
     Dates: start: 201909
  2. FOSFOMYCIN [Concomitant]
     Active Substance: FOSFOMYCIN
     Indication: PRODUCT USED FOR UNKNOWN INDICATION
     Dosage: UNK
     Route: 065
  3. SOMATULINE [Suspect]
     Active Substance: LANREOTIDE ACETATE
     Indication: NEUROENDOCRINE TUMOUR
     Dosage: 120 MG (AUTOGEL)
     Route: 058
  4. SOMATULINE [Suspect]
     Active Substance: LANREOTIDE ACETATE
     Dosage: 120 MG, 28D (AUTOGEL)
     Route: 065
     Dates: start: 201909

REACTIONS (9)
  - Arthralgia [Unknown]
  - Diarrhoea [Unknown]
  - Cough [Unknown]
  - Stomatitis [Unknown]
  - Vulvovaginal inflammation [Unknown]
  - Keratitis [Unknown]
  - Toxicity to various agents [Unknown]
  - Abdominal pain [Unknown]
  - Off label use [Unknown]
